FAERS Safety Report 6996702-3 (Version None)
Quarter: 2010Q3

REPORT INFORMATION
  Report Type: 
  Country: None (occurrence: None)
  Receive Date: 20100918
  Receipt Date: 20090625
  Transmission Date: 20110219
  Serious: No
  Sender: FDA-Public Use
  Company Number: US-WYE-H09920609

PATIENT
  Sex: Female
  Weight: 63.56 kg

DRUGS (3)
  1. EFFEXOR XR [Suspect]
     Indication: DEPRESSION
     Route: 048
     Dates: start: 20011001
  2. EFFEXOR XR [Suspect]
     Dosage: GOT DOWN TO 75 MG EVERY OTHER DAY, THEN HAD TO GO BACK ON PRODUCT
     Route: 048
     Dates: start: 20090401
  3. ZOCOR [Concomitant]

REACTIONS (4)
  - DRUG WITHDRAWAL SYNDROME [None]
  - FEELING ABNORMAL [None]
  - HEADACHE [None]
  - NAUSEA [None]
